FAERS Safety Report 9034119 (Version 1)
Quarter: 2013Q1

REPORT INFORMATION
  Report Type: Spontaneous
  Country: US (occurrence: None)
  Receive Date: 20130114
  Receipt Date: 20130114
  Transmission Date: 20140127
  Serious: Yes (Other)
  Sender: FDA-Public Use
  Company Number: E2B_00000547

PATIENT
  Age: 87 Year
  Sex: Female
  Weight: 58.97 kg

DRUGS (6)
  1. CEFDINIR [Suspect]
     Indication: SINUSITIS
     Dosage: (300 MG,2 IN 1 D)
     Dates: start: 201211, end: 201211
  2. CLOPIDOGREL (PLAVIX) (UNKNOWN) [Concomitant]
  3. ATORVASTATIN (LIPITOR) (UNKNOWN) [Concomitant]
  4. ATENOLOL (UNKNOWN) [Concomitant]
  5. LISINOPRIL (UNKNOWN) (LISINOPRIL) [Concomitant]
  6. ASPIRIN (UNKNOWN) [Concomitant]

REACTIONS (5)
  - Plicated tongue [None]
  - Ageusia [None]
  - Diarrhoea [None]
  - Deafness [None]
  - Tongue disorder [None]
